FAERS Safety Report 9215801 (Version 4)
Quarter: 2013Q3

REPORT INFORMATION
  Report Type: Report from Study
  Country: US (occurrence: US)
  Receive Date: 20130408
  Receipt Date: 20130702
  Transmission Date: 20140515
  Serious: Yes (Life-Threatening, Hospitalization)
  Sender: FDA-Public Use
  Company Number: US-JNJFOC-20130400249

PATIENT
  Age: 16 Year
  Sex: Female
  Weight: 60.5 kg

DRUGS (9)
  1. REMICADE [Suspect]
     Indication: CROHN^S DISEASE
     Route: 042
     Dates: start: 20130510
  2. REMICADE [Suspect]
     Indication: CROHN^S DISEASE
     Route: 042
     Dates: start: 20100831
  3. 5-ASA [Concomitant]
     Route: 065
  4. VITAMIN D [Concomitant]
     Route: 065
  5. OMEPRAZOLE [Concomitant]
     Route: 065
  6. ZYRTEC [Concomitant]
     Route: 065
  7. HYDROCORTISONE [Concomitant]
     Route: 061
  8. FERROUS SULPHATE [Concomitant]
     Route: 065
  9. PRENATAL VITAMINS [Concomitant]
     Route: 065

REACTIONS (2)
  - Haemorrhagic anaemia [Recovered/Resolved]
  - Crohn^s disease [Recovered/Resolved]
